FAERS Safety Report 17744253 (Version 4)
Quarter: 2021Q1

REPORT INFORMATION
  Report Type: Other
  Country: US (occurrence: US)
  Receive Date: 20200505
  Receipt Date: 20210309
  Transmission Date: 20210419
  Serious: Yes (Hospitalization, Other)
  Sender: FDA-Public Use
  Company Number: US-ROCHE-2588880

PATIENT
  Age: 61 Year
  Sex: Female
  Weight: 65.38 kg

DRUGS (21)
  1. TOPIRAMATE. [Concomitant]
     Active Substance: TOPIRAMATE
     Dosage: IF WORSENS, CAN INCREASE TO 2 PER A DAY ; ONGOING YES
     Route: 048
     Dates: start: 2008
  2. FLU SHOT [Concomitant]
     Active Substance: INFLUENZA VIRUS VACCINE
     Dosage: UNKNOWN
     Dates: start: 20191016
  3. OMEPRAZOLE. [Concomitant]
     Active Substance: OMEPRAZOLE
     Indication: GASTROOESOPHAGEAL REFLUX DISEASE
     Dosage: IN THE MORNING ;ONGOING: YES
  4. METHYLPHENIDATE. [Concomitant]
     Active Substance: METHYLPHENIDATE
     Indication: FATIGUE
     Dosage: ONGOING: YES
     Route: 048
     Dates: start: 2010
  5. ESTRADIOL. [Concomitant]
     Active Substance: ESTRADIOL
     Dosage: ONGOING YES
     Route: 062
     Dates: start: 2010
  6. ESTRADIOL. [Concomitant]
     Active Substance: ESTRADIOL
     Dosage: ONGOING YES
     Route: 062
     Dates: start: 2012
  7. DIPHENHYDRAMINE. [Concomitant]
     Active Substance: DIPHENHYDRAMINE
     Indication: INSOMNIA
     Dosage: AT NIGHT ; ONGOING YES
     Route: 048
  8. TOPIRAMATE. [Concomitant]
     Active Substance: TOPIRAMATE
     Indication: MIGRAINE
     Dosage: ONGOING YES ; VARIES BETWEEN ONCE TO TWICE A DAY
     Route: 048
     Dates: start: 2010
  9. ESTROGEN [Concomitant]
     Active Substance: ESTROGENS
     Dosage: 2 TIMES PER WEEK ;ONGOING: YES
  10. ACYCLOVIR. [Concomitant]
     Active Substance: ACYCLOVIR
     Indication: ORAL HERPES
     Dosage: 1/2 GRAM ;ONGOING: YES
  11. VITAMIN D3 [Concomitant]
     Active Substance: CHOLECALCIFEROL
     Route: 048
  12. LIPITOR [Concomitant]
     Active Substance: ATORVASTATIN CALCIUM
     Route: 048
     Dates: start: 202009
  13. METHYLPHENIDATE. [Concomitant]
     Active Substance: METHYLPHENIDATE
     Indication: ASTHENIA
  14. FISH OIL + VITAMIN D3 [Concomitant]
     Active Substance: CHOLECALCIFEROL\FISH OIL
     Indication: BLOOD CHOLESTEROL
     Dosage: WITH VITAMIN D ;ONGOING: YES
     Route: 048
  15. OCREVUS [Suspect]
     Active Substance: OCRELIZUMAB
     Dosage: ONGOING: YES
     Route: 042
     Dates: start: 20190807
  16. VITAMIN D3 [Concomitant]
     Active Substance: CHOLECALCIFEROL
     Indication: VITAMIN D DECREASED
     Route: 048
  17. DIPHENHYDRAMINE. [Concomitant]
     Active Substance: DIPHENHYDRAMINE
     Route: 048
     Dates: start: 1997
  18. OCREVUS [Suspect]
     Active Substance: OCRELIZUMAB
     Indication: RELAPSING-REMITTING MULTIPLE SCLEROSIS
     Dosage: 2 HALF DOSES; SUBSEQUENT DOSE 600 MG EVERY 6 MONTHS
     Route: 042
     Dates: start: 20190122
  19. VALACYCLOVIR [Concomitant]
     Active Substance: VALACYCLOVIR HYDROCHLORIDE
     Indication: ORAL HERPES
     Dosage: TAKES HALF TABLET OF 1 GM; ONGOING YES
     Route: 048
     Dates: start: 201906
  20. VALACYCLOVIR [Concomitant]
     Active Substance: VALACYCLOVIR HYDROCHLORIDE
     Dosage: FOR OUTBREAK?TAKE 2 GRAMS FOR 1 DAY ; ONGOING YES
     Route: 048
  21. METAMUCIL [Concomitant]
     Active Substance: PLANTAGO SEED
     Indication: DYSPEPSIA
     Dosage: ONGOING YES
     Route: 048

REACTIONS (16)
  - Oropharyngeal pain [Recovered/Resolved]
  - Blood iron decreased [Unknown]
  - Arterial occlusive disease [Unknown]
  - Oral herpes [Not Recovered/Not Resolved]
  - Hordeolum [Not Recovered/Not Resolved]
  - Gait disturbance [Not Recovered/Not Resolved]
  - Fungal infection [Not Recovered/Not Resolved]
  - Arthralgia [Unknown]
  - Dysgraphia [Not Recovered/Not Resolved]
  - Disturbance in attention [Not Recovered/Not Resolved]
  - Urinary tract infection [Not Recovered/Not Resolved]
  - Diarrhoea [Recovered/Resolved]
  - Chest pain [Recovered/Resolved]
  - Speech disorder [Not Recovered/Not Resolved]
  - Myocardial infarction [Unknown]
  - Rash [Recovered/Resolved]

NARRATIVE: CASE EVENT DATE: 201910
